FAERS Safety Report 6524855-X (Version None)
Quarter: 2010Q1

REPORT INFORMATION
  Report Type: 
  Country: None (occurrence: None)
  Receive Date: 20100104
  Receipt Date: 20091222
  Transmission Date: 20100710
  Serious: Yes (Hospitalization)
  Sender: FDA-Public Use
  Company Number: PHHY2009CA57572

PATIENT
  Sex: Female

DRUGS (6)
  1. DIOVAN [Suspect]
     Indication: HYPERTENSION
     Dosage: 80 MG DAILY
     Route: 048
     Dates: start: 20081217, end: 20090906
  2. CRESTOR [Concomitant]
     Dosage: 40 MG DAILY
     Route: 048
  3. ASPIRIN [Concomitant]
     Dosage: 80 MG DAILY
     Route: 048
  4. ALPRAZOLAM [Concomitant]
     Dosage: 0.5 MG DAILY
     Route: 048
  5. TOPAMAX [Concomitant]
     Dosage: 25 MG DAILY
     Route: 048
  6. CELEBREX [Concomitant]
     Dosage: 200 MG, BID
     Route: 048

REACTIONS (4)
  - FALL [None]
  - HIP FRACTURE [None]
  - ORTHOSTATIC HYPOTENSION [None]
  - PROSTHESIS USER [None]
